FAERS Safety Report 6248904-1 (Version None)
Quarter: 2009Q2

REPORT INFORMATION
  Report Type: 
  Country: None (occurrence: None)
  Receive Date: 20090629
  Receipt Date: 20090617
  Transmission Date: 20091009
  Serious: Yes (Other)
  Sender: FDA-Public Use
  Company Number: ES-PFIZER INC-2009228069

PATIENT
  Age: 63 Year

DRUGS (5)
  1. LYRICA [Suspect]
     Indication: NEURALGIA
     Dosage: 150 MG, 1X/DAY
     Route: 048
     Dates: start: 20080901
  2. PANTOPRAZOL [Concomitant]
     Indication: GASTROOESOPHAGEAL REFLUX DISEASE
     Dosage: UNK
     Route: 048
     Dates: start: 20081201
  3. ALENDRONATE SODIUM [Concomitant]
     Indication: OSTEOPOROSIS
     Dosage: UNK
     Route: 048
     Dates: start: 20080101
  4. DAKTARIN ORAL GEL [Concomitant]
     Indication: ORAL LICHEN PLANUS
     Dosage: UNK
     Route: 061
     Dates: start: 20090401
  5. NATECAL D [Concomitant]
     Indication: OSTEOPOROSIS
     Dosage: UNK
     Dates: start: 20080101

REACTIONS (6)
  - COGNITIVE DISORDER [None]
  - DEPERSONALISATION [None]
  - DISTURBANCE IN ATTENTION [None]
  - DRY MOUTH [None]
  - ERECTILE DYSFUNCTION [None]
  - GASTROOESOPHAGEAL REFLUX DISEASE [None]
